FAERS Safety Report 4514652-9 (Version None)
Quarter: 2004Q4

REPORT INFORMATION
  Report Type: 
  Country: None (occurrence: None)
  Receive Date: 20041126
  Receipt Date: 20041116
  Transmission Date: 20050328
  Serious: No
  Sender: FDA-Public Use
  Company Number: RS004719-F

PATIENT
  Age: 42 Year
  Sex: Female

DRUGS (5)
  1. RABEPRAZOLE SODIUM [Suspect]
     Indication: ABDOMINAL PAIN UPPER
     Dosage: 20 MG, ORAL
     Route: 048
     Dates: start: 20040909, end: 20040915
  2. CLARITHROMYCIN [Concomitant]
  3. AMOXICILLINE (AMOXICILLIN) [Concomitant]
  4. RANITIDINE [Concomitant]
  5. INEXIUM (ESOMEPRAZOLE) [Concomitant]

REACTIONS (2)
  - ABORTION SPONTANEOUS [None]
  - DRUG EXPOSURE DURING PREGNANCY [None]
